FAERS Safety Report 5909521-3 (Version None)
Quarter: 2008Q4

REPORT INFORMATION
  Report Type: 
  Country: None (occurrence: None)
  Receive Date: 20081006
  Receipt Date: 20080924
  Transmission Date: 20090506
  Serious: Yes (Death)
  Sender: FDA-Public Use
  Company Number: JP-ABBOTT-08P-087-0479975-00

PATIENT
  Age: 79 Year
  Sex: Male

DRUGS (3)
  1. LEUPROLIDE ACETATE [Suspect]
     Indication: PROSTATE CANCER STAGE II
     Route: 058
     Dates: start: 20060627, end: 20070821
  2. LEUPROLIDE ACETATE [Suspect]
     Route: 058
     Dates: end: 20060530
  3. NAFTOPIDIL [Concomitant]
     Indication: BENIGN PROSTATIC HYPERPLASIA
     Route: 048
     Dates: end: 20071012

REACTIONS (2)
  - INJECTION SITE INDURATION [None]
  - PANCREATIC CARCINOMA [None]
